FAERS Safety Report 8185811-1 (Version None)
Quarter: 2012Q1

REPORT INFORMATION
  Report Type: 
  Country: None (occurrence: None)
  Receive Date: 20120305
  Receipt Date: 20120302
  Transmission Date: 20120608
  Serious: Yes (Death, Hospitalization, Other)
  Sender: FDA-Public Use
  Company Number: GB-ABBOTT-11P-167-0883546-00

PATIENT
  Sex: Female
  Weight: 61 kg

DRUGS (1)
  1. HUMIRA [Suspect]
     Indication: RHEUMATOID ARTHRITIS
     Route: 058
     Dates: start: 20041020, end: 20100504

REACTIONS (4)
  - ENDOCARDITIS [None]
  - MYOCARDIAL ISCHAEMIA [None]
  - LIP AND/OR ORAL CAVITY CANCER [None]
  - CARDIO-RESPIRATORY ARREST [None]
